FAERS Safety Report 5153754-3 (Version None)
Quarter: 2006Q4

REPORT INFORMATION
  Report Type: 
  Country: None (occurrence: None)
  Receive Date: 20061120
  Receipt Date: 20060601
  Transmission Date: 20070319
  Serious: Yes (Death)
  Sender: FDA-Public Use
  Company Number: US-ELI_LILLY_AND_COMPANY-US200606000841

PATIENT
  Age: 74 Year
  Sex: Female
  Weight: 49.886 kg

DRUGS (1)
  1. ZYPREXA [Suspect]
     Indication: DEMENTIA
     Dosage: 5 MG, UNK
     Dates: start: 20030201, end: 20040913

REACTIONS (3)
  - DEATH [None]
  - DIABETES MELLITUS [None]
  - WEIGHT INCREASED [None]
